FAERS Safety Report 16200908 (Version 1)
Quarter: 2019Q2

REPORT INFORMATION
  Report Type: Spontaneous
  Country: GB (occurrence: GB)
  Receive Date: 20190416
  Receipt Date: 20190416
  Transmission Date: 20190711
  Serious: Yes (Disabling)
  Sender: FDA-Public Use
  Company Number: GB-TEVA-2019-GB-1037702

PATIENT
  Age: 67 Year
  Sex: Female
  Weight: 70 kg

DRUGS (7)
  1. PARACETAMOL [Concomitant]
     Active Substance: ACETAMINOPHEN
     Dosage: 250MG PER 5ML. TWO TO FOUR 5ML SPOONS EVERY 4 TO 6 HOURS
     Route: 048
  2. CASSIA (SENNA ALEXANDRINA) [Concomitant]
     Active Substance: HERBALS\SENNOSIDES
     Dosage: ONE OR TWO AT SUPPER
  3. LAMOTRIGINE. [Concomitant]
     Active Substance: LAMOTRIGINE
     Dosage: 200 MILLIGRAM DAILY;
  4. RISPERIDONE. [Concomitant]
     Active Substance: RISPERIDONE
     Dosage: 250 MICROGRAM DAILY;
  5. ALENDRONIC ACID [Suspect]
     Active Substance: ALENDRONIC ACID
     Route: 048
     Dates: start: 20190222
  6. COSMOCOL [Concomitant]
     Dosage: 1-2 DAILY
     Route: 048
  7. LORAZEPAM. [Concomitant]
     Active Substance: LORAZEPAM
     Dosage: HALF TO ONE TABLET UP TO THREE TIMES DAILY (SWALLOWED OR USED UNDER THE TONGUE) IF AGITATED.

REACTIONS (2)
  - Oral mucosal erythema [Unknown]
  - Stomatitis necrotising [Unknown]

NARRATIVE: CASE EVENT DATE: 20190222
